FAERS Safety Report 4433955-X (Version None)
Quarter: 2004Q3

REPORT INFORMATION
  Report Type: 
  Country: None (occurrence: None)
  Receive Date: 20040825
  Receipt Date: 20040825
  Transmission Date: 20050211
  Serious: Yes (Hospitalization)
  Sender: FDA-Public Use
  Company Number: None

PATIENT
  Age: 69 Year
  Sex: Male
  Weight: 102.3 kg

DRUGS (11)
  1. EMCYT [Suspect]
     Indication: PROSTATE CANCER
     Dosage: 280 MG TID ORAL
     Route: 048
     Dates: start: 20040609, end: 20040730
  2. ETOPOSIDE [Concomitant]
  3. TAXOL [Concomitant]
  4. ATIVAN [Concomitant]
  5. LYCOPENE [Concomitant]
  6. SELENIUM TRACE METAL ADDITIVE [Concomitant]
  7. VITAMIN A [Concomitant]
  8. FLOMAX [Concomitant]
  9. MULTI-VITAMIN [Concomitant]
  10. COUMADIN [Concomitant]
  11. LUPRON [Concomitant]

REACTIONS (6)
  - DIPLOPIA [None]
  - HYPOAESTHESIA [None]
  - OEDEMA PERIPHERAL [None]
  - PARAESTHESIA [None]
  - TRANSIENT ISCHAEMIC ATTACK [None]
  - VERTIGO [None]
